FAERS Safety Report 5136937-8 (Version None)
Quarter: 2006Q4

REPORT INFORMATION
  Report Type: 
  Country: None (occurrence: None)
  Receive Date: 20061023
  Receipt Date: 20061009
  Transmission Date: 20070319
  Serious: Yes (Other)
  Sender: FDA-Public Use
  Company Number: 2006125000

PATIENT
  Age: 70 Year
  Sex: Female
  Weight: 71.6683 kg

DRUGS (6)
  1. REACTINE  SYRUP          (CETIRIZINE) [Suspect]
     Indication: HYPERSENSITIVITY
     Dosage: 10 MG (5 MG, 2 IN 1 D)
     Dates: start: 20061008
  2. CLONAZEPAM [Concomitant]
  3. TIAZAC [Concomitant]
  4. PREVACID [Concomitant]
  5. NORTRIPTYLINE HCL [Concomitant]
  6. SPIROTONE (SPIRONOLACTONE) [Concomitant]

REACTIONS (1)
  - HYPOAESTHESIA [None]
